FAERS Safety Report 4374291-X (Version None)
Quarter: 2004Q2

REPORT INFORMATION
  Report Type: 
  Country: None (occurrence: None)
  Receive Date: 20040604
  Receipt Date: 20040528
  Transmission Date: 20050107
  Serious: Yes (Other)
  Sender: FDA-Public Use
  Company Number: US-SHR-03-018444

PATIENT
  Age: 16 Year
  Sex: Female

DRUGS (1)
  1. YASMIN [Suspect]
     Indication: ACNE
     Dosage: 1 TAB, 1X/DAY, ORAL
     Route: 048
     Dates: start: 20030701, end: 20031201

REACTIONS (4)
  - ABDOMINAL PAIN [None]
  - BREAST MASS [None]
  - METRORRHAGIA [None]
  - OVARIAN CYST RUPTURED [None]
